FAERS Safety Report 6727189-3 (Version None)
Quarter: 2010Q2

REPORT INFORMATION
  Report Type: 
  Country: None (occurrence: None)
  Receive Date: 20100517
  Receipt Date: 20100504
  Transmission Date: 20101027
  Serious: Yes (Other)
  Sender: FDA-Public Use
  Company Number: IT-JNJFOC-20100503662

PATIENT
  Sex: Male
  Weight: 2.85 kg

DRUGS (3)
  1. INFLIXIMAB [Suspect]
     Indication: DRUG EXPOSURE VIA BREAST MILK
     Route: 064
  2. INFLIXIMAB [Suspect]
     Indication: DRUG EXPOSURE DURING PREGNANCY
     Route: 064
  3. AZATHIOPRINE [Concomitant]
     Indication: DRUG EXPOSURE DURING PREGNANCY
     Route: 064

REACTIONS (2)
  - BREAST FEEDING [None]
  - PREMATURE BABY [None]
